FAERS Safety Report 6381396-0 (Version None)
Quarter: 2009Q3

REPORT INFORMATION
  Report Type: 
  Country: None (occurrence: None)
  Receive Date: 20090924
  Receipt Date: 20090909
  Transmission Date: 20100115
  Serious: Yes (Other)
  Sender: FDA-Public Use
  Company Number: 2009002727

PATIENT
  Age: 67 Year
  Sex: Male
  Weight: 62 kg

DRUGS (4)
  1. ERLOTINIB HYDROCHLORIDE [Suspect]
     Indication: NON-SMALL CELL LUNG CANCER
     Dosage: (150 MG, QD), ORAL
     Route: 048
     Dates: start: 20090120, end: 20090306
  2. ACETAMINOPHEN [Concomitant]
  3. CARVEDILOL [Concomitant]
  4. GASTER D [Concomitant]

REACTIONS (3)
  - DECUBITUS ULCER [None]
  - LUNG ADENOCARCINOMA [None]
  - MALIGNANT NEOPLASM PROGRESSION [None]
